FAERS Safety Report 6909574-X (Version None)
Quarter: 2010Q3

REPORT INFORMATION
  Report Type: 
  Country: None (occurrence: None)
  Receive Date: 20100805
  Receipt Date: 20100727
  Transmission Date: 20110219
  Serious: Yes (Death)
  Sender: FDA-Public Use
  Company Number: US-BAXTER-2010BH020149

PATIENT
  Age: 38 Year

DRUGS (3)
  1. CYCLOPHOSPHAMIDE [Suspect]
     Indication: RETINOBLASTOMA
     Route: 065
  2. VINCRISTINE SULFATE [Suspect]
     Indication: RETINOBLASTOMA
     Route: 065
  3. ETOPOSIDE [Suspect]
     Indication: RETINOBLASTOMA
     Route: 065

REACTIONS (2)
  - MULTI-ORGAN FAILURE [None]
  - SEPSIS [None]
